FAERS Safety Report 10209413 (Version 1)
Quarter: 2014Q2

REPORT INFORMATION
  Report Type: Spontaneous
  Country: US (occurrence: US)
  Receive Date: 20140601
  Receipt Date: 20140601
  Transmission Date: 20141212
  Serious: No
  Sender: FDA-Public Use
  Company Number: US-TEVA-484794USA

PATIENT
  Sex: Female

DRUGS (1)
  1. ACTIQ [Suspect]

REACTIONS (2)
  - Vomiting [Unknown]
  - Dental caries [Unknown]
